FAERS Safety Report 24551126 (Version 2)
Quarter: 2024Q4

REPORT INFORMATION
  Report Type: Spontaneous
  Country: US (occurrence: US)
  Receive Date: 20241025
  Receipt Date: 20241216
  Transmission Date: 20250115
  Serious: Yes (Other)
  Sender: PFIZER
  Company Number: US-PFIZER INC-202400285434

PATIENT
  Age: 47 Year
  Sex: Female

DRUGS (1)
  1. RITUXIMAB [Suspect]
     Active Substance: RITUXIMAB
     Indication: Rheumatoid arthritis
     Dosage: UNK

REACTIONS (4)
  - Sjogren^s syndrome [Unknown]
  - Therapeutic product effect incomplete [Unknown]
  - Body height decreased [Unknown]
  - Fibromyalgia [Not Recovered/Not Resolved]
